FAERS Safety Report 15936912 (Version 1)
Quarter: 2019Q1

REPORT INFORMATION
  Report Type: Spontaneous
  Country: US (occurrence: US)
  Receive Date: 20190208
  Receipt Date: 20190208
  Transmission Date: 20190417
  Serious: Yes (Disabling)
  Sender: FDA-Public Use
  Company Number: None

PATIENT
  Age: 61 Year
  Sex: Female
  Weight: 61.2 kg

DRUGS (4)
  1. BUPROPION ER 150MG TAB DR [Suspect]
     Active Substance: BUPROPION
     Indication: BIPOLAR DISORDER
     Dosage: ?          QUANTITY:270 TABLET(S);?
     Route: 048
     Dates: start: 20190115, end: 20190117
  2. TYLENOL [Concomitant]
     Active Substance: ACETAMINOPHEN
  3. SYNTHROID - 88MCG [Concomitant]
  4. LIOTHYRONINE 5MG, [Concomitant]

REACTIONS (13)
  - Headache [None]
  - Nausea [None]
  - Asthenia [None]
  - Hypotension [None]
  - Crying [None]
  - Dizziness [None]
  - Agitation [None]
  - Vision blurred [None]
  - Product odour abnormal [None]
  - Abdominal pain upper [None]
  - Influenza [None]
  - Malaise [None]
  - Product substitution issue [None]

NARRATIVE: CASE EVENT DATE: 20190115
